FAERS Safety Report 7214517-8 (Version None)
Quarter: 2010Q4

REPORT INFORMATION
  Report Type: 
  Country: None (occurrence: None)
  Receive Date: 20101126
  Receipt Date: 20091218
  Transmission Date: 20110411
  Serious: Yes (Disabling)
  Sender: FDA-Public Use
  Company Number: WAES 0903USA02263

PATIENT
  Age: 70 Year
  Sex: Female
  Weight: 48.0813 kg

DRUGS (3)
  1. FOSAMAX [Suspect]
     Indication: OSTEOPOROSIS
     Dosage: 10 MG/PO
     Route: 048
     Dates: start: 19980101, end: 20071003
  2. FOSAMAX [Suspect]
     Indication: OSTEOPOROSIS
     Dosage: 70 MG/WKY/PO ; 70 MG/PO
     Route: 048
     Dates: start: 20030807, end: 20070726
  3. FOSAMAX [Suspect]
     Indication: OSTEOPOROSIS
     Dosage: 70 MG/WKY/PO ; 70 MG/PO
     Route: 048
     Dates: start: 19980101, end: 20071003

REACTIONS (17)
  - ABNORMAL LOSS OF WEIGHT [None]
  - BONE DISORDER [None]
  - EAR INJURY [None]
  - EXOSTOSIS [None]
  - FATIGUE [None]
  - HERPES ZOSTER [None]
  - HYPERSENSITIVITY [None]
  - HYPERTENSION [None]
  - NECK INJURY [None]
  - NOCTURIA [None]
  - ORAL TORUS [None]
  - OSTEONECROSIS [None]
  - PAIN IN EXTREMITY [None]
  - SINUS DISORDER [None]
  - SYNCOPE [None]
  - TOOTH ABSCESS [None]
  - TOOTH INFECTION [None]
